FAERS Safety Report 12954708 (Version 1)
Quarter: 2016Q4

REPORT INFORMATION
  Report Type: Spontaneous
  Country: DE (occurrence: DE)
  Receive Date: 20161118
  Receipt Date: 20161118
  Transmission Date: 20170207
  Serious: Yes (Other)
  Sender: FDA-Public Use
  Company Number: DE-WEST-WARD PHARMACEUTICALS CORP.-DE-H14001-16-02509

PATIENT
  Age: 59 Year
  Sex: Male

DRUGS (4)
  1. VANCOMYCIN [Suspect]
     Active Substance: VANCOMYCIN
     Indication: INTERVERTEBRAL DISCITIS
     Route: 042
     Dates: start: 20160925, end: 20161025
  2. ALLOPURINOL. [Concomitant]
     Active Substance: ALLOPURINOL
     Indication: PRODUCT USED FOR UNKNOWN INDICATION
     Route: 048
     Dates: end: 20161012
  3. MEROPENEM. [Suspect]
     Active Substance: MEROPENEM
     Indication: INTERVERTEBRAL DISCITIS
     Route: 042
     Dates: start: 20160925, end: 20161025
  4. NOVALGIN [Suspect]
     Active Substance: METAMIZOLE SODIUM
     Indication: NECK PAIN
     Route: 048
     Dates: start: 20160929, end: 20161012

REACTIONS (2)
  - Thrombocytopenia [Recovered/Resolved]
  - Leukopenia [Recovered/Resolved]

NARRATIVE: CASE EVENT DATE: 20161010
